FAERS Safety Report 16343029 (Version 1)
Quarter: 2019Q3

REPORT INFORMATION
  Report Type: Spontaneous
  Country: US (occurrence: US)
  Receive Date: 20190521
  Receipt Date: 20190521
  Transmission Date: 20191004
  Serious: Yes (Life-Threatening)
  Sender: FDA-Public Use
  Company Number: None

PATIENT
  Age: 69 Year
  Sex: Female
  Weight: 96.7 kg

DRUGS (10)
  1. TICAGRELOR. [Suspect]
     Active Substance: TICAGRELOR
     Indication: STENT PLACEMENT
     Route: 048
     Dates: start: 20190512, end: 20190519
  2. ROSUVASTATIN 20 MG DAILY [Concomitant]
     Dates: start: 20190512
  3. OMEPRAZOLE 40 MG DAILY [Concomitant]
  4. METOPROLOL SUCCINATE 25 MG DAILY [Concomitant]
  5. ASPIRIN. [Suspect]
     Active Substance: ASPIRIN
     Indication: ACUTE MYOCARDIAL INFARCTION
     Route: 048
     Dates: start: 20190512, end: 20190519
  6. AMLODIPINE 2.5 MG DAILY [Concomitant]
  7. MELOXICAM 7.5 MG DAILY [Concomitant]
     Dates: start: 20180501, end: 20190519
  8. ASPIRIN. [Suspect]
     Active Substance: ASPIRIN
     Indication: STENT PLACEMENT
     Route: 048
     Dates: start: 20190512, end: 20190519
  9. TICAGRELOR. [Suspect]
     Active Substance: TICAGRELOR
     Indication: ACUTE MYOCARDIAL INFARCTION
     Route: 048
     Dates: start: 20190512, end: 20190519
  10. FERROUS SULFATE 325 MG DAILY [Concomitant]

REACTIONS (3)
  - Haemorrhage intracranial [None]
  - Incorrect dose administered [None]
  - Product prescribing error [None]

NARRATIVE: CASE EVENT DATE: 20190519
